FAERS Safety Report 15190383 (Version 1)
Quarter: 2018Q3

REPORT INFORMATION
  Report Type: Spontaneous
  Country: CN (occurrence: CN)
  Receive Date: 20180724
  Receipt Date: 20180724
  Transmission Date: 20181010
  Serious: Yes (Hospitalization)
  Sender: FDA-Public Use
  Company Number: CN-AVADEL LEGACY PHARMACEUTICALS, LLC-2018AVA00152

PATIENT
  Age: 12 Year
  Sex: Male
  Weight: 41 kg

DRUGS (9)
  1. MIDAZOLAM [Concomitant]
     Active Substance: MIDAZOLAM HYDROCHLORIDE
     Indication: SEDATION
     Dosage: 7.0 MG, ONCE
     Route: 042
  2. CISATRACURIUM. [Concomitant]
     Active Substance: CISATRACURIUM
     Indication: GENERAL ANAESTHESIA
     Dosage: 0.25 MG/KG, UNK
     Route: 042
  3. DIPRIVAN [Concomitant]
     Active Substance: PROPOFOL
     Indication: GENERAL ANAESTHESIA
     Dosage: 1.5 MG/KG, UNK
     Route: 042
  4. ROPIVACAINE [Concomitant]
     Active Substance: ROPIVACAINE
     Indication: NERVE BLOCK
     Dosage: 20 ML, UNK
     Route: 065
  5. FENTANYL. [Concomitant]
     Active Substance: FENTANYL
     Indication: GENERAL ANAESTHESIA
     Dosage: 4 ?G/KG, UNK
     Route: 042
  6. NEOSTIGMINE [Suspect]
     Active Substance: NEOSTIGMINE
     Indication: RESPIRATORY DEPRESSION
     Dosage: 1 MG, TWICE
     Route: 042
  7. SEVOFLURANE. [Concomitant]
     Active Substance: SEVOFLURANE
     Indication: GENERAL ANAESTHESIA
     Dosage: 1?1.5%
     Route: 065
  8. ATROPINE. [Concomitant]
     Active Substance: ATROPINE
     Indication: RESPIRATORY DEPRESSION
     Dosage: 0.5 MG, TWICE
     Route: 042
  9. RINGERS SOLUTION [Concomitant]
     Active Substance: CALCIUM CHLORIDE\POTASSIUM CHLORIDE\SODIUM CHLORIDE
     Dosage: 500 ML, ONCE
     Route: 065

REACTIONS (1)
  - Non-cardiogenic pulmonary oedema [Recovered/Resolved]
